FAERS Safety Report 8712110 (Version 4)
Quarter: 2014Q1

REPORT INFORMATION
  Report Type: Report from Study
  Country: CA (occurrence: CA)
  Receive Date: 20120807
  Receipt Date: 20140121
  Transmission Date: 20141002
  Serious: Yes (Other)
  Sender: FDA-Public Use
  Company Number: CA-ROCHE-1096591

PATIENT
  Age: 62 Year
  Sex: Male
  Weight: 70.3 kg

DRUGS (12)
  1. RITUXIMAB [Suspect]
     Indication: RHEUMATOID ARTHRITIS
     Dosage: DAY 1 AND DAY 15
     Route: 042
     Dates: start: 20100712
  2. EMTEC-30 [Concomitant]
  3. ALENDRONATE [Concomitant]
  4. MORPHINE [Concomitant]
  5. NABUMETONE [Concomitant]
  6. PREDNISONE [Concomitant]
  7. OMEPRAZOLE [Concomitant]
  8. AZATHIOPRINE [Concomitant]
  9. METHOTREXATE [Concomitant]
  10. ALENDRONATE [Concomitant]
  11. ACETAMINOPHEN [Concomitant]
     Route: 048
     Dates: start: 20130705
  12. METHYLPREDNISOLONE [Concomitant]
     Route: 042
     Dates: start: 20130705

REACTIONS (8)
  - Chest pain [Not Recovered/Not Resolved]
  - Back pain [Not Recovered/Not Resolved]
  - Constipation [Not Recovered/Not Resolved]
  - Pain [Not Recovered/Not Resolved]
  - Nasopharyngitis [Not Recovered/Not Resolved]
  - Feeling hot [Recovered/Resolved]
  - Hyperhidrosis [Recovered/Resolved]
  - Pneumonia [Unknown]
